FAERS Safety Report 4459366-9 (Version None)
Quarter: 2004Q3

REPORT INFORMATION
  Report Type: 
  Country: None (occurrence: None)
  Receive Date: 20040927
  Receipt Date: 20040419
  Transmission Date: 20050211
  Serious: Yes (Other)
  Sender: FDA-Public Use
  Company Number: GB-ROCHE-364827

PATIENT
  Age: 29 Year
  Sex: Female
  Weight: 63.1 kg

DRUGS (2)
  1. ROACCUTANE [Suspect]
     Indication: ACNE
     Route: 048
     Dates: start: 20040102
  2. ROACCUTANE [Suspect]
     Route: 048
     Dates: end: 20040301

REACTIONS (3)
  - ANXIETY [None]
  - DEPRESSION [None]
  - IMPAIRED WORK ABILITY [None]
